FAERS Safety Report 6617181-1 (Version None)
Quarter: 2010Q1

REPORT INFORMATION
  Report Type: 
  Country: None (occurrence: None)
  Receive Date: 20100307
  Receipt Date: 20090211
  Transmission Date: 20100710
  Serious: No
  Sender: FDA-Public Use
  Company Number: US-BAYER-200828861NA

PATIENT
  Sex: Female

DRUGS (9)
  1. MAGNEVIST [Suspect]
     Indication: NUCLEAR MAGNETIC RESONANCE IMAGING
  2. OMNISCAN [Suspect]
     Indication: NUCLEAR MAGNETIC RESONANCE IMAGING
     Dates: start: 20030807, end: 20030807
  3. OMNISCAN [Suspect]
     Dates: start: 20031018, end: 20031018
  4. OMNISCAN [Suspect]
     Dates: start: 20031029, end: 20031029
  5. OMNISCAN [Suspect]
     Dates: start: 20031211, end: 20031211
  6. OMNISCAN [Suspect]
     Dates: start: 20040206, end: 20040206
  7. OPTIMARK [Suspect]
     Indication: NUCLEAR MAGNETIC RESONANCE IMAGING
  8. MULTIHANCE [Suspect]
     Indication: NUCLEAR MAGNETIC RESONANCE IMAGING
  9. PROHANCE [Suspect]
     Indication: NUCLEAR MAGNETIC RESONANCE IMAGING

REACTIONS (6)
  - ANXIETY [None]
  - EMOTIONAL DISTRESS [None]
  - FIBROSIS [None]
  - INJURY [None]
  - NEPHROGENIC SYSTEMIC FIBROSIS [None]
  - PAIN [None]
